FAERS Safety Report 6036624-8 (Version None)
Quarter: 2009Q1

REPORT INFORMATION
  Report Type: 
  Country: None (occurrence: None)
  Receive Date: 20090114
  Receipt Date: 20090109
  Transmission Date: 20090719
  Serious: Yes (Death, Life-Threatening)
  Sender: FDA-Public Use
  Company Number: JP-NOVOPROD-283000

PATIENT
  Age: 77 Year
  Sex: Male

DRUGS (1)
  1. NOVOSEVEN [Suspect]
     Indication: ACQUIRED HAEMOPHILIA
     Dosage: 4.8 MG, UNK
     Route: 042
     Dates: start: 20081031

REACTIONS (1)
  - DEATH [None]
